FAERS Safety Report 5195411-3 (Version None)
Quarter: 2006Q4

REPORT INFORMATION
  Report Type: 
  Country: None (occurrence: None)
  Receive Date: 20061229
  Receipt Date: 20061211
  Transmission Date: 20070319
  Serious: Yes (Other)
  Sender: FDA-Public Use
  Company Number: NO-PFIZER INC-2006155804

PATIENT
  Age: 64 Year
  Sex: Male

DRUGS (5)
  1. ATARAX [Suspect]
     Indication: ANXIETY
     Route: 048
  2. VALLERGAN [Suspect]
     Indication: ANXIETY
  3. SEROQUEL [Suspect]
     Indication: BIPOLAR DISORDER
     Dosage: DAILY DOSE:300MG
     Route: 048
  4. CYMBALTA [Suspect]
     Indication: BIPOLAR DISORDER
     Dosage: DAILY DOSE:60MG
     Route: 048
  5. LAMOTRIGINE [Concomitant]
     Route: 048

REACTIONS (3)
  - AKATHISIA [None]
  - DEPRESSION [None]
  - TARDIVE DYSKINESIA [None]
